FAERS Safety Report 5783032-0 (Version None)
Quarter: 2008Q2

REPORT INFORMATION
  Report Type: 
  Country: None (occurrence: None)
  Receive Date: 20080619
  Receipt Date: 20080604
  Transmission Date: 20081010
  Serious: Yes (Other)
  Sender: FDA-Public Use
  Company Number: JPI-P-003507

PATIENT
  Age: 38 Year
  Sex: Female

DRUGS (9)
  1. LUVOX [Suspect]
     Indication: SOCIAL PHOBIA
     Dosage: 25 MG, 1 D), ORAL, (50 MG, 1 D), ORAL, (100 MG, 1 D), ORAL , (150 MG, 1 D),  ORAL
     Route: 048
     Dates: start: 20071105, end: 20071113
  2. LUVOX [Suspect]
     Indication: SOCIAL PHOBIA
     Dosage: 25 MG, 1 D), ORAL, (50 MG, 1 D), ORAL, (100 MG, 1 D), ORAL , (150 MG, 1 D),  ORAL
     Route: 048
     Dates: start: 20071113, end: 20071123
  3. LUVOX [Suspect]
     Indication: SOCIAL PHOBIA
     Dosage: 25 MG, 1 D), ORAL, (50 MG, 1 D), ORAL, (100 MG, 1 D), ORAL , (150 MG, 1 D),  ORAL
     Route: 048
     Dates: start: 20071124, end: 20080307
  4. LUVOX [Suspect]
     Indication: SOCIAL PHOBIA
     Dosage: 25 MG, 1 D), ORAL, (50 MG, 1 D), ORAL, (100 MG, 1 D), ORAL , (150 MG, 1 D),  ORAL
     Route: 048
     Dates: start: 20080401, end: 20080401
  5. LUVOX [Suspect]
     Indication: SOCIAL PHOBIA
     Dosage: 25 MG, 1 D), ORAL, (50 MG, 1 D), ORAL, (100 MG, 1 D), ORAL , (150 MG, 1 D),  ORAL
     Route: 048
     Dates: start: 20080308, end: 20080411
  6. LUVOX [Suspect]
     Indication: SOCIAL PHOBIA
     Dosage: 25 MG, 1 D), ORAL, (50 MG, 1 D), ORAL, (100 MG, 1 D), ORAL , (150 MG, 1 D),  ORAL
     Route: 048
     Dates: start: 20080419, end: 20080428
  7. LORAZEPAM [Concomitant]
  8. SULPIRIDE (SULPIRIDE) [Concomitant]
  9. CLONAZEPAM [Concomitant]

REACTIONS (1)
  - HAEMORRHAGE SUBCUTANEOUS [None]
